FAERS Safety Report 17174518 (Version 1)
Quarter: 2019Q4

REPORT INFORMATION
  Report Type: Spontaneous
  Country: ES (occurrence: ES)
  Receive Date: 20191219
  Receipt Date: 20191219
  Transmission Date: 20200122
  Serious: Yes (Disabling, Other)
  Sender: FDA-Public Use
  Company Number: ES-MYLANLABS-2019M1124770

PATIENT
  Age: 82 Year
  Sex: Female

DRUGS (5)
  1. BROMAZEPAM [Concomitant]
     Active Substance: BROMAZEPAM
  2. SIMVASTATIN. [Concomitant]
     Active Substance: SIMVASTATIN
     Dosage: UNK
  3. OMEPRAZOLE. [Concomitant]
     Active Substance: OMEPRAZOLE
  4. SERTRALINE [Suspect]
     Active Substance: SERTRALINE HYDROCHLORIDE
     Indication: PRODUCT USED FOR UNKNOWN INDICATION
     Dosage: 50 MILLIGRAM, QD
  5. AMLODIPINE [Interacting]
     Active Substance: AMLODIPINE BESYLATE
     Indication: PRODUCT USED FOR UNKNOWN INDICATION
     Dosage: UNK
     Route: 065

REACTIONS (10)
  - Drug interaction [Recovered/Resolved]
  - Fall [Recovered/Resolved]
  - Bradykinesia [Recovered/Resolved]
  - Peroneal nerve palsy [Recovered/Resolved]
  - Cogwheel rigidity [Recovered/Resolved]
  - Tremor [Recovered/Resolved]
  - Reduced facial expression [Recovered/Resolved]
  - Apathy [Recovered/Resolved]
  - Torticollis [Recovered/Resolved]
  - Parkinsonism [Recovered/Resolved]
